FAERS Safety Report 4648550-7 (Version None)
Quarter: 2005Q2

REPORT INFORMATION
  Report Type: 
  Country: None (occurrence: None)
  Receive Date: 20050429
  Receipt Date: 20050419
  Transmission Date: 20051028
  Serious: Yes (Disabling)
  Sender: FDA-Public Use
  Company Number: GB-JNJFOC-20050405077

PATIENT
  Sex: Male
  Weight: 43.7 kg

DRUGS (1)
  1. CONCERTA [Suspect]
     Indication: ATTENTION DEFICIT/HYPERACTIVITY DISORDER
     Dates: start: 20041201, end: 20050125

REACTIONS (3)
  - CONDITION AGGRAVATED [None]
  - DEPRESSED MOOD [None]
  - HALLUCINATION, AUDITORY [None]
